FAERS Safety Report 10524158 (Version 3)
Quarter: 2014Q4

REPORT INFORMATION
  Report Type: Spontaneous
  Country: DE (occurrence: DE)
  Receive Date: 20141017
  Receipt Date: 20141128
  Transmission Date: 20150528
  Serious: Yes (Disabling)
  Sender: FDA-Public Use
  Company Number: DE-SA-2014SA120002

PATIENT
  Age: 62 Year
  Sex: Female
  Weight: 63 kg

DRUGS (4)
  1. VERAPAMIL [Concomitant]
     Active Substance: VERAPAMIL HYDROCHLORIDE
  2. LIPROLOG [Concomitant]
     Active Substance: INSULIN LISPRO
  3. LANTUS [Suspect]
     Active Substance: INSULIN GLARGINE
     Route: 058
     Dates: start: 201403
  4. METOPROLOL [Concomitant]
     Active Substance: METOPROLOL

REACTIONS (6)
  - Dry skin [Unknown]
  - Rash [Unknown]
  - Erythema [Unknown]
  - Rash pustular [Recovering/Resolving]
  - Pruritus [Recovering/Resolving]
  - Skin wrinkling [Unknown]
